FAERS Safety Report 8202446-2 (Version None)
Quarter: 2012Q1

REPORT INFORMATION
  Report Type: 
  Country: None (occurrence: None)
  Receive Date: 20120312
  Receipt Date: 20120117
  Transmission Date: 20120608
  Serious: No
  Sender: FDA-Public Use
  Company Number: US-ABBOTT-12P-163-0895462-00

PATIENT
  Age: 15 Year
  Sex: Female

DRUGS (2)
  1. DEPAKOTE [Suspect]
     Indication: MIGRAINE
  2. DEPAKOTE [Suspect]

REACTIONS (2)
  - HEPATIC ENZYME INCREASED [None]
  - NAUSEA [None]
